FAERS Safety Report 4432181-8 (Version None)
Quarter: 2004Q3

REPORT INFORMATION
  Report Type: 
  Country: None (occurrence: None)
  Receive Date: 20040818
  Receipt Date: 20040810
  Transmission Date: 20050211
  Serious: Yes (Hospitalization)
  Sender: FDA-Public Use
  Company Number: 2004225486US

PATIENT
  Age: 76 Year
  Sex: Male
  Weight: 80.7 kg

DRUGS (9)
  1. IRINOTECAN (IRINOTECAN) CAPSULE [Suspect]
     Indication: PANCREATIC CARCINOMA METASTATIC
     Dosage: 50 MG/M2, QD X 5 DAYS, ORAL
     Route: 048
     Dates: start: 20040712, end: 20040716
  2. COMPARATOR-CAPECITABINE (CAPECITABINE) TABLET [Suspect]
     Indication: PANCREATIC CARCINOMA METASTATIC
     Dosage: 1600 MG/M2, BID, DAY 6 TO 14, ORAL
     Route: 048
     Dates: start: 20040717, end: 20040724
  3. OXYCONTIN [Concomitant]
  4. ENDOCET (OXYCODONE HYDROCHLORIDE) [Concomitant]
  5. POLYETHYLENE GLYCOL (MACROGOL) [Concomitant]
  6. COUMADIN [Concomitant]
  7. TRAVATAN (TRAVOPROST) [Concomitant]
  8. ISOPTO-CARBACHOL (CARBACHOL) [Concomitant]
  9. PROMETHAZINE [Concomitant]

REACTIONS (8)
  - ANOREXIA [None]
  - ASCITES [None]
  - COMA [None]
  - CONDITION AGGRAVATED [None]
  - DEHYDRATION [None]
  - EARLY SATIETY [None]
  - FATIGUE [None]
  - VOMITING [None]
